FAERS Safety Report 6502810-3 (Version None)
Quarter: 2009Q4

REPORT INFORMATION
  Report Type: 
  Country: None (occurrence: None)
  Receive Date: 20091127
  Receipt Date: 20090908
  Transmission Date: 20100525
  Serious: No
  Sender: FDA-Public Use
  Company Number: 001688

PATIENT
  Age: 28 Year
  Sex: Female

DRUGS (5)
  1. LACOSAMIDE [Suspect]
     Indication: EPILEPSY
  2. DEPAKOTE ER [Suspect]
     Indication: EPILEPSY
     Dosage: 1000 MG BID ORAL, 1000 MG BID ORAL
     Route: 048
     Dates: start: 20090101, end: 20090101
  3. DEPAKOTE ER [Suspect]
     Indication: EPILEPSY
     Dosage: 1000 MG BID ORAL, 1000 MG BID ORAL
     Route: 048
     Dates: start: 20090101
  4. FOLIC ACID [Concomitant]
  5. VITAMIN TAB [Concomitant]

REACTIONS (3)
  - CONVULSION [None]
  - DRUG INTOLERANCE [None]
  - PREGNANCY [None]
